FAERS Safety Report 6439837-6 (Version None)
Quarter: 2009Q4

REPORT INFORMATION
  Report Type: 
  Country: None (occurrence: None)
  Receive Date: 20091113
  Receipt Date: 20091102
  Transmission Date: 20100525
  Serious: Yes (Hospitalization)
  Sender: FDA-Public Use
  Company Number: ES-BRISTOL-MYERS SQUIBB COMPANY-14043459

PATIENT
  Age: 49 Year
  Sex: Female

DRUGS (2)
  1. CETUXIMAB [Suspect]
     Indication: BREAST CANCER METASTATIC
     Dosage: STRENGTH - 5MG/ML
     Route: 041
     Dates: start: 20080104, end: 20080104
  2. CISPLATIN [Suspect]
     Indication: BREAST CANCER METASTATIC
     Route: 041
     Dates: start: 20080104, end: 20080104

REACTIONS (1)
  - HYPONATRAEMIA [None]
